FAERS Safety Report 13084394 (Version 1)
Quarter: 2017Q1

REPORT INFORMATION
  Report Type: Spontaneous
  Country: US (occurrence: US)
  Receive Date: 20170102
  Receipt Date: 20170102
  Transmission Date: 20170428
  Serious: Yes (Hospitalization)
  Sender: FDA-Public Use
  Company Number: None

PATIENT
  Age: 10 Month
  Sex: Female
  Weight: 8.3 kg

DRUGS (1)
  1. SPINRAZA [Suspect]
     Active Substance: NUSINERSEN
     Indication: PRODUCT USED FOR UNKNOWN INDICATION
     Dosage: OTHER FREQUENCY:Q14 DAYS;?
     Route: 037
     Dates: start: 20161221

REACTIONS (2)
  - Respiratory syncytial virus bronchiolitis [None]
  - Respiratory distress [None]

NARRATIVE: CASE EVENT DATE: 20170101
